FAERS Safety Report 9978820 (Version 1)
Quarter: 2014Q1

REPORT INFORMATION
  Report Type: Report from Study
  Country: US (occurrence: US)
  Receive Date: 20140306
  Receipt Date: 20140306
  Transmission Date: 20141002
  Serious: No
  Sender: FDA-Public Use
  Company Number: US-ABBVIE-13P-163-1168684-00

PATIENT
  Age: 66 Year
  Sex: Female
  Weight: 72.64 kg

DRUGS (9)
  1. HUMIRA [Suspect]
     Indication: CROHN^S DISEASE
     Dosage: LOADING DOSE
     Dates: start: 20131107, end: 20131107
  2. DILTIAZEM [Concomitant]
     Indication: HYPERTENSION
  3. POTASSIUM [Concomitant]
     Indication: MINERAL SUPPLEMENTATION
  4. PLAVIX [Concomitant]
     Indication: CEREBROVASCULAR ACCIDENT PROPHYLAXIS
  5. CARVEDILOL [Concomitant]
     Indication: HYPERTENSION
  6. PRAVASTATIN [Concomitant]
     Indication: BLOOD CHOLESTEROL INCREASED
  7. IRON [Concomitant]
     Indication: MINERAL SUPPLEMENTATION
  8. MULTIVITAMIN [Concomitant]
     Indication: VITAMIN SUPPLEMENTATION
  9. OMEGA 3 [Concomitant]
     Indication: ARTHROPATHY

REACTIONS (1)
  - Pruritus generalised [Recovering/Resolving]
